FAERS Safety Report 19032273 (Version 1)
Quarter: 2021Q1

REPORT INFORMATION
  Report Type: Spontaneous
  Country: US (occurrence: US)
  Receive Date: 20210319
  Receipt Date: 20210319
  Transmission Date: 20210420
  Serious: Yes (Hospitalization)
  Sender: FDA-Public Use
  Company Number: US-FRESENIUS MEDICAL CARE RENAL THERAPIES GROUP-FMC-2103-000344

PATIENT
  Age: 45 Year
  Sex: Female
  Weight: 78 kg

DRUGS (2)
  1. DELFLEX WITH DEXTROSE 1.5% LOW MAGNESIUM LOW CALCIUM [Suspect]
     Active Substance: CALCIUM CHLORIDE\DEXTROSE\MAGNESIUM CHLORIDE\SODIUM CHLORIDE\SODIUM LACTATE
     Indication: END STAGE RENAL DISEASE
     Dosage: 1500 ML FOR 5 CYCLES WITH A LAST FILL OF 1500 ML AND NO DAYTIME EXCHANGE
     Route: 033
     Dates: start: 20180926
  2. DELFLEX WITH DEXTROSE 2.5% LOW MAGNESIUM LOW CALCIUM [Suspect]
     Active Substance: CALCIUM CHLORIDE\DEXTROSE\MAGNESIUM CHLORIDE\SODIUM CHLORIDE\SODIUM LACTATE
     Indication: END STAGE RENAL DISEASE
     Dosage: 1500 ML FOR 5 CYCLES WITH A LAST FILL OF 1500 ML AND NO DAYTIME EXCHANGE
     Route: 033
     Dates: start: 20180926

REACTIONS (1)
  - Peritonitis bacterial [Recovering/Resolving]
